FAERS Safety Report 4982296-0 (Version None)
Quarter: 2006Q1

REPORT INFORMATION
  Report Type: 
  Country: None (occurrence: None)
  Receive Date: 20060227
  Receipt Date: 20050105
  Transmission Date: 20060701
  Serious: Yes (Life-Threatening, Hospitalization, Other)
  Sender: FDA-Public Use
  Company Number: WAES 0411USA02108

PATIENT
  Age: 63 Year
  Sex: Female
  Weight: 86.1834 kg

DRUGS (13)
  1. ZOCOR [Suspect]
     Indication: CORONARY ARTERY DISEASE
     Dosage: 40 MG/DAILY/PO; 80 MG/DAILY/PO
     Route: 048
     Dates: start: 20020801, end: 20040801
  2. ZOCOR [Suspect]
     Indication: HYPERCHOLESTEROLAEMIA
     Dosage: 40 MG/DAILY/PO; 80 MG/DAILY/PO
     Route: 048
     Dates: start: 20020801, end: 20040801
  3. ZOCOR [Suspect]
     Indication: CORONARY ARTERY DISEASE
     Dosage: 40 MG/DAILY/PO; 80 MG/DAILY/PO
     Route: 048
     Dates: start: 20040802, end: 20041102
  4. ZOCOR [Suspect]
     Indication: HYPERCHOLESTEROLAEMIA
     Dosage: 40 MG/DAILY/PO; 80 MG/DAILY/PO
     Route: 048
     Dates: start: 20040802, end: 20041102
  5. ACCUPRIL [Concomitant]
  6. HYDRODIURIL [Concomitant]
  7. LEXAPRO [Concomitant]
  8. TIAZAC [Concomitant]
  9. TOPROL-XL [Concomitant]
  10. ZETIA [Concomitant]
  11. ASPIRIN [Concomitant]
  12. IBUPROFEN [Concomitant]
  13. VITAMIN B COMPLEX CAP [Concomitant]

REACTIONS (1)
  - RHABDOMYOLYSIS [None]
